FAERS Safety Report 10152428 (Version 2)
Quarter: 2014Q2

REPORT INFORMATION
  Report Type: Spontaneous
  Country: US (occurrence: US)
  Receive Date: 20140505
  Receipt Date: 20140505
  Transmission Date: 20141212
  Serious: No
  Sender: FDA-Public Use
  Company Number: US-TEVA-391861USA

PATIENT
  Age: 17 Year
  Sex: Female

DRUGS (3)
  1. CLARAVIS [Suspect]
     Route: 048
     Dates: start: 20121002, end: 20121228
  2. DROSPIRENONE W/ETHINYLESTRADIOL [Concomitant]
  3. VENLAFAXINE HYDROCHLORIDE [Concomitant]

REACTIONS (2)
  - Hypertriglyceridaemia [Recovering/Resolving]
  - Hepatic enzyme increased [Recovering/Resolving]
